FAERS Safety Report 22592911 (Version 1)
Quarter: 2023Q2

REPORT INFORMATION
  Report Type: Spontaneous
  Country: US (occurrence: US)
  Receive Date: 20230613
  Receipt Date: 20230613
  Transmission Date: 20230721
  Serious: Yes (Hospitalization)
  Sender: FDA-Public Use
  Company Number: US-HETERO-HET2023US01512

PATIENT
  Age: 29 Year
  Sex: Female

DRUGS (6)
  1. LITHIUM [Suspect]
     Active Substance: LITHIUM
     Indication: Mood altered
     Dosage: 300 MG, B.I.D.
     Route: 048
  2. LITHIUM [Suspect]
     Active Substance: LITHIUM
     Dosage: 300 MG, T.I.D.
     Route: 048
  3. PAXLOVID [Concomitant]
     Active Substance: NIRMATRELVIR\RITONAVIR
     Indication: COVID-19
     Dosage: UNK
     Route: 065
  4. MELATONIN [Concomitant]
     Active Substance: MELATONIN
     Indication: Insomnia
     Dosage: 3 MG
     Route: 048
  5. CLONAZEPAM [Concomitant]
     Active Substance: CLONAZEPAM
     Indication: Anxiety
     Dosage: 0.5 MG, B.I.D.
     Route: 048
  6. DIPHENHYDRAMINE [Concomitant]
     Active Substance: DIPHENHYDRAMINE
     Indication: Insomnia
     Dosage: 50 MG, Q.H.S.
     Route: 048

REACTIONS (2)
  - Drug level below therapeutic [Unknown]
  - Salivary hypersecretion [Recovered/Resolved]
